FAERS Safety Report 5179883-6 (Version None)
Quarter: 2006Q4

REPORT INFORMATION
  Report Type: 
  Country: None (occurrence: None)
  Receive Date: 20061211
  Receipt Date: 20060908
  Transmission Date: 20070319
  Serious: Yes (Other)
  Sender: FDA-Public Use
  Company Number: 2006111557

PATIENT
  Age: 65 Year
  Sex: Female

DRUGS (3)
  1. LYRICA [Suspect]
     Indication: NEURALGIA
     Dosage: 75 MG
     Dates: start: 20060906, end: 20060907
  2. RILMENIDINE DIHYDROGEN PHOSPHATE [Concomitant]
  3. LERCANIDIPINE [Concomitant]

REACTIONS (3)
  - ABASIA [None]
  - DRUG INEFFECTIVE [None]
  - SENSORY LOSS [None]
